FAERS Safety Report 9183469 (Version 1)
Quarter: 2013Q1

REPORT INFORMATION
  Report Type: Spontaneous
  Country: US (occurrence: US)
  Receive Date: 20130322
  Receipt Date: 20130322
  Transmission Date: 20140127
  Serious: No
  Sender: FDA-Public Use
  Company Number: US-BRISTOL-MYERS SQUIBB COMPANY-16425720

PATIENT
  Age: 63 Year
  Sex: Female
  Weight: 52 kg

DRUGS (1)
  1. ERBITUX [Suspect]
     Indication: COLON CANCER
     Dates: start: 201202

REACTIONS (1)
  - Dry skin [Not Recovered/Not Resolved]
